FAERS Safety Report 13728895 (Version 1)
Quarter: 2017Q3

REPORT INFORMATION
  Report Type: Spontaneous
  Country: US (occurrence: US)
  Receive Date: 20170707
  Receipt Date: 20170707
  Transmission Date: 20171127
  Serious: Yes (Other)
  Sender: FDA-Public Use
  Company Number: US-STRIDES ARCOLAB LIMITED-2017SP008346

PATIENT

DRUGS (1)
  1. IMIQUIMOD. [Suspect]
     Active Substance: IMIQUIMOD
     Indication: VULVAR DYSPLASIA
     Dosage: FIVE TIMES PER WEEK, FOR 12 WEEKS
     Route: 061

REACTIONS (4)
  - Candida infection [Recovered/Resolved]
  - Pain [Recovered/Resolved]
  - Skin irritation [Recovered/Resolved]
  - Off label use [Unknown]
